FAERS Safety Report 4786918-9 (Version None)
Quarter: 2005Q4

REPORT INFORMATION
  Report Type: 
  Country: None (occurrence: None)
  Receive Date: 20051004
  Receipt Date: 20050907
  Transmission Date: 20060501
  Serious: Yes (Hospitalization)
  Sender: FDA-Public Use
  Company Number: US-BRISTOL-MYERS SQUIBB COMPANY-13102843

PATIENT
  Age: 78 Year
  Sex: Male

DRUGS (7)
  1. ERBITUX [Suspect]
     Indication: COLON CANCER METASTATIC
     Dosage: ONE FINAL DOSE ADMINISTERED ON 29-AUG-2005.
     Route: 042
     Dates: start: 20050815, end: 20050815
  2. BENADRYL [Concomitant]
  3. CLEOCIN T [Concomitant]
     Route: 061
  4. NEURONTIN [Concomitant]
  5. PREDNISONE [Concomitant]
  6. ROBITUSSIN AC [Concomitant]
  7. XELODA [Concomitant]
     Dates: start: 20050808, end: 20050822

REACTIONS (1)
  - PULMONARY EMBOLISM [None]
